FAERS Safety Report 24452973 (Version 1)
Quarter: 2024Q4

REPORT INFORMATION
  Report Type: Spontaneous
  Country: US (occurrence: US)
  Receive Date: 20241017
  Receipt Date: 20241017
  Transmission Date: 20250114
  Serious: No
  Sender: SUNOVION
  Company Number: US-UROVANT SCIENCES GMBH-202406-URV-000853

PATIENT
  Sex: Female

DRUGS (2)
  1. GEMTESA [Suspect]
     Active Substance: VIBEGRON
     Indication: Product used for unknown indication
     Dosage: 75 MG, 30 TABLETS BOTTLE
  2. GEMTESA [Suspect]
     Active Substance: VIBEGRON
     Dosage: 75 MG, 90 TABLETS BOTTLE
     Route: 065

REACTIONS (1)
  - Product label confusion [Unknown]
